FAERS Safety Report 9190055 (Version 2)
Quarter: 2013Q2

REPORT INFORMATION
  Report Type: Spontaneous
  Country: US (occurrence: US)
  Receive Date: 20130326
  Receipt Date: 20130416
  Transmission Date: 20140414
  Serious: No
  Sender: FDA-Public Use
  Company Number: US-PFIZER INC-2013093322

PATIENT
  Age: 58 Year
  Sex: Male
  Weight: 118 kg

DRUGS (1)
  1. VIAGRA [Suspect]
     Indication: ERECTILE DYSFUNCTION
     Dosage: UNK, PRN
     Route: 048
     Dates: start: 2009, end: 2009

REACTIONS (1)
  - Drug ineffective [Recovered/Resolved]
